FAERS Safety Report 9768492 (Version 3)
Quarter: 2013Q4

REPORT INFORMATION
  Report Type: Spontaneous
  Country: CN (occurrence: CN)
  Receive Date: 20131217
  Receipt Date: 20131223
  Transmission Date: 20140711
  Serious: Yes (Death, Life-Threatening, Other)
  Sender: FDA-Public Use
  Company Number: CN-ASTRAZENECA-2013SE91626

PATIENT
  Age: 105 Month
  Sex: Male
  Weight: 21 kg

DRUGS (19)
  1. PULMICORT RESPULES [Suspect]
     Indication: BRONCHOPNEUMONIA
     Route: 055
     Dates: start: 20131212, end: 20131212
  2. AMBROXOL [Concomitant]
     Indication: BRONCHOPNEUMONIA
     Route: 042
  3. AMBROXOL [Concomitant]
     Indication: BRONCHOPNEUMONIA
     Dosage: 3RD TIME
     Route: 042
     Dates: start: 20131212, end: 20131212
  4. AMBROXOL [Concomitant]
     Indication: BRONCHOPNEUMONIA
     Route: 055
  5. AMBROXOL [Concomitant]
     Indication: BRONCHOPNEUMONIA
     Route: 041
  6. RIBAVIRIN [Concomitant]
     Indication: BRONCHOPNEUMONIA
     Route: 042
  7. RIBAVIRIN [Concomitant]
     Indication: BRONCHOPNEUMONIA
     Dosage: 3RD TIME
     Route: 042
     Dates: start: 20131212, end: 20131212
  8. RIBAVIRIN [Concomitant]
     Indication: BRONCHOPNEUMONIA
     Route: 055
  9. RIBAVIRIN [Concomitant]
     Indication: BRONCHOPNEUMONIA
     Route: 041
  10. LIDOCAINE [Concomitant]
     Indication: BRONCHOPNEUMONIA
     Dates: start: 20131212, end: 20131212
  11. VITAMIN C [Concomitant]
     Indication: BRONCHOPNEUMONIA
     Route: 041
     Dates: start: 20131212, end: 20131212
  12. CEFOTIAM [Concomitant]
     Indication: BRONCHOPNEUMONIA
     Route: 042
     Dates: start: 20131212, end: 20131212
  13. CEFOTIAM [Concomitant]
     Indication: BRONCHOPNEUMONIA
     Route: 041
  14. SODIUM CHLORIDE [Concomitant]
     Dosage: (0.9%)(BASIC)/0.9%10ML 5 5ML BID AEROSOL INHALATION
     Route: 041
     Dates: start: 20131212
  15. SODIUM CHLORIDE [Concomitant]
     Route: 055
  16. DEXAMETHASONE [Concomitant]
     Route: 055
  17. DEXAMETHASONE [Concomitant]
     Dosage: (BASIC)/5MG 10 5MG ST IV BOLUS
     Route: 065
  18. CEFAZOLIN [Concomitant]
     Route: 041
  19. DEXTROMETHORPHAN HYDROBROMIDE [Concomitant]
     Route: 048

REACTIONS (8)
  - Larynx irritation [Fatal]
  - Respiratory failure [Fatal]
  - Circulatory collapse [Fatal]
  - Anaphylactic shock [Fatal]
  - Acute pulmonary oedema [Fatal]
  - Laryngeal oedema [Fatal]
  - Heart sounds abnormal [Unknown]
  - Bronchopneumonia [Unknown]
